FAERS Safety Report 13624537 (Version 1)
Quarter: 2017Q2

REPORT INFORMATION
  Report Type: Spontaneous
  Country: US (occurrence: US)
  Receive Date: 20170607
  Receipt Date: 20170607
  Transmission Date: 20170830
  Serious: No
  Sender: FDA-Public Use
  Company Number: US-PURDUE-USA-2017-0135963

PATIENT
  Age: 51 Year
  Sex: Female

DRUGS (1)
  1. BUTRANS [Suspect]
     Active Substance: BUPRENORPHINE
     Indication: PAIN
     Dosage: 7.5 MCG/HR, WEEKLY
     Route: 062
     Dates: start: 201606

REACTIONS (5)
  - Inappropriate schedule of drug administration [Unknown]
  - Chills [Unknown]
  - Hyperhidrosis [Unknown]
  - Rhinorrhoea [Unknown]
  - Pain [Unknown]

NARRATIVE: CASE EVENT DATE: 201701
